FAERS Safety Report 6861939-0 (Version None)
Quarter: 2010Q3

REPORT INFORMATION
  Report Type: 
  Country: None (occurrence: None)
  Receive Date: 20100720
  Receipt Date: 20100720
  Transmission Date: 20110219
  Serious: Yes (Other)
  Sender: FDA-Public Use
  Company Number: None

PATIENT
  Age: 45 Year
  Sex: Female
  Weight: 45.3597 kg

DRUGS (1)
  1. REQUIP XL [Suspect]
     Indication: PARKINSON'S DISEASE
     Dates: start: 20090330, end: 20100719

REACTIONS (17)
  - ACTIVITIES OF DAILY LIVING IMPAIRED [None]
  - APHONIA [None]
  - COMPULSIVE SHOPPING [None]
  - CONFUSIONAL STATE [None]
  - EUPHORIC MOOD [None]
  - HALLUCINATION [None]
  - HEADACHE [None]
  - HYPERACUSIS [None]
  - HYPERSEXUALITY [None]
  - MALAISE [None]
  - MANIA [None]
  - NECK PAIN [None]
  - OROPHARYNGEAL PAIN [None]
  - OVERDOSE [None]
  - PAIN IN JAW [None]
  - PARANOIA [None]
  - SUDDEN ONSET OF SLEEP [None]
